FAERS Safety Report 26027469 (Version 1)
Quarter: 2025Q4

REPORT INFORMATION
  Report Type: Spontaneous
  Country: US (occurrence: US)
  Receive Date: 20251111
  Receipt Date: 20251111
  Transmission Date: 20260118
  Serious: Yes (Other)
  Sender: STAQ PHARMA - No Location Specified
  Company Number: US-STAQ Pharma, Inc-2188319

PATIENT
  Sex: Male

DRUGS (1)
  1. DESMOPRESSIN ACETATE [Suspect]
     Active Substance: DESMOPRESSIN ACETATE
     Indication: Factor VIII deficiency

REACTIONS (1)
  - Drug effect less than expected [Recovered/Resolved]
